FAERS Safety Report 25986568 (Version 1)
Quarter: 2025Q4

REPORT INFORMATION
  Report Type: Spontaneous
  Country: EU (occurrence: EU)
  Receive Date: 20251101
  Receipt Date: 20251101
  Transmission Date: 20260118
  Serious: Yes (Other)
  Sender: TEVA
  Company Number: None

PATIENT
  Age: 59 Year
  Sex: Female
  Weight: 100 kg

DRUGS (1)
  1. SULFAMETHOXAZOLE\TRIMETHOPRIM [Suspect]
     Active Substance: SULFAMETHOXAZOLE\TRIMETHOPRIM
     Indication: Cystitis noninfective
     Dosage: 2X1, COTRIM FORTE-RATIOPHARM 800 MG/160 MG TABLETS, DURATION: 4.5 DAYS
     Route: 048

REACTIONS (5)
  - Suicidal ideation [Recovered/Resolved]
  - Somnolence [Recovered/Resolved]
  - Abnormal dreams [Recovered/Resolved]
  - Weight decreased [Recovered/Resolved]
  - Nightmare [Recovered/Resolved]
